FAERS Safety Report 10368551 (Version 4)
Quarter: 2014Q4

REPORT INFORMATION
  Report Type: Spontaneous
  Country: US (occurrence: US)
  Receive Date: 20140807
  Receipt Date: 20141212
  Transmission Date: 20150528
  Serious: Yes (Hospitalization, Other)
  Sender: FDA-Public Use
  Company Number: US-GLAXOSMITHKLINE-A1083587A

PATIENT
  Sex: Female

DRUGS (8)
  1. VENTOLIN [Suspect]
     Active Substance: ALBUTEROL SULFATE
     Indication: ASTHMA
     Route: 055
     Dates: start: 2000
  2. INSULIN [Suspect]
     Active Substance: INSULIN NOS
     Indication: DIABETES MELLITUS
     Route: 058
  3. PREDNISONE. [Suspect]
     Active Substance: PREDNISONE
     Indication: PRODUCT USED FOR UNKNOWN INDICATION
     Route: 065
  4. ADVAIR HFA [Suspect]
     Active Substance: FLUTICASONE PROPIONATE\SALMETEROL XINAFOATE
     Indication: CHRONIC OBSTRUCTIVE PULMONARY DISEASE
  5. VENTOLIN [Suspect]
     Active Substance: ALBUTEROL SULFATE
     Indication: CHRONIC OBSTRUCTIVE PULMONARY DISEASE
  6. ADVAIR HFA [Suspect]
     Active Substance: FLUTICASONE PROPIONATE\SALMETEROL XINAFOATE
     Indication: BRONCHITIS CHRONIC
  7. VENTOLIN [Suspect]
     Active Substance: ALBUTEROL SULFATE
     Indication: SLEEP APNOEA SYNDROME
  8. ADVAIR HFA [Suspect]
     Active Substance: FLUTICASONE PROPIONATE\SALMETEROL XINAFOATE
     Indication: ASTHMA
     Dosage: 250/50 MCG ONE PUFF TWICE DAILY500/50 MCG TWICE DAILY
     Route: 055

REACTIONS (18)
  - Cataract [Unknown]
  - Diabetes mellitus [Recovered/Resolved]
  - Chronic obstructive pulmonary disease [Unknown]
  - Breast pain [Recovering/Resolving]
  - Multiple allergies [Recovering/Resolving]
  - Abscess [Recovered/Resolved]
  - Wound [Recovering/Resolving]
  - Wound complication [Recovering/Resolving]
  - Infection [Recovering/Resolving]
  - Dyspnoea [Unknown]
  - Overdose [Unknown]
  - Malaise [Recovering/Resolving]
  - Drug ineffective [Unknown]
  - Staphylococcal infection [Recovering/Resolving]
  - Injection site infection [Recovering/Resolving]
  - Hyperhidrosis [Recovering/Resolving]
  - Hearing impaired [Unknown]
  - Wound drainage [Recovering/Resolving]

NARRATIVE: CASE EVENT DATE: 2007
